FAERS Safety Report 7839056-2 (Version None)
Quarter: 2011Q4

REPORT INFORMATION
  Report Type: 
  Country: None (occurrence: None)
  Receive Date: 20111024
  Receipt Date: 20110721
  Transmission Date: 20120403
  Serious: Yes (Death, Other)
  Sender: FDA-Public Use
  Company Number: PHHO2011AU15062

PATIENT
  Sex: Female

DRUGS (2)
  1. OCTREOTIDE ACETATE [Suspect]
     Indication: METASTASES TO LIVER
  2. SANDOSTATIN LAR [Suspect]
     Indication: METASTASES TO LIVER

REACTIONS (3)
  - DIARRHOEA [None]
  - DEATH [None]
  - NEOPLASM MALIGNANT [None]
